FAERS Safety Report 6209301-8 (Version None)
Quarter: 2009Q2

REPORT INFORMATION
  Report Type: 
  Country: None (occurrence: None)
  Receive Date: 20090529
  Receipt Date: 20090527
  Transmission Date: 20091009
  Serious: Yes (Other)
  Sender: FDA-Public Use
  Company Number: JP-AMGEN-US342538

PATIENT
  Sex: Female
  Weight: 40 kg

DRUGS (17)
  1. ENBREL [Suspect]
     Indication: RHEUMATOID ARTHRITIS
     Route: 058
     Dates: start: 20071025, end: 20090406
  2. PREDNISOLONE [Concomitant]
     Indication: RHEUMATOID ARTHRITIS
     Route: 048
     Dates: start: 20080108, end: 20080121
  3. PREDNISOLONE [Concomitant]
     Route: 048
     Dates: start: 20080122, end: 20080414
  4. PREDNISOLONE [Concomitant]
     Route: 048
     Dates: start: 20080415, end: 20081006
  5. PREDNISOLONE [Concomitant]
     Route: 048
     Dates: start: 20081007, end: 20081201
  6. PREDNISOLONE [Concomitant]
     Route: 048
     Dates: start: 20090323, end: 20090419
  7. PREDNISOLONE [Concomitant]
     Route: 048
     Dates: start: 20090420
  8. TAKEPRON [Concomitant]
     Indication: PROPHYLAXIS
     Route: 048
     Dates: start: 20081025
  9. BENET [Concomitant]
     Indication: OSTEOPOROSIS
     Route: 048
     Dates: start: 20080411
  10. ISCOTIN [Concomitant]
     Indication: ANTIBIOTIC PROPHYLAXIS
     Route: 048
     Dates: start: 20081025
  11. HYPEN [Concomitant]
     Indication: RHEUMATOID ARTHRITIS
     Route: 048
     Dates: start: 20070101
  12. GASMOTIN [Concomitant]
     Indication: EPIGASTRIC DISCOMFORT
     Route: 048
     Dates: start: 20080707, end: 20080810
  13. MARZULENE [Concomitant]
     Route: 048
     Dates: start: 20080811
  14. METHOTREXATE [Concomitant]
     Indication: RHEUMATOID ARTHRITIS
     Dosage: UNSPECIFIED DOSE
     Route: 048
     Dates: end: 20071024
  15. METHOTREXATE [Concomitant]
     Dates: start: 20071025, end: 20080706
  16. METHOTREXATE [Concomitant]
     Route: 048
     Dates: start: 20080707
  17. FOLIAMIN [Concomitant]
     Indication: PROPHYLAXIS
     Route: 048
     Dates: start: 20081025

REACTIONS (1)
  - SYSTEMIC LUPUS ERYTHEMATOSUS [None]
